FAERS Safety Report 8198186-9 (Version None)
Quarter: 2012Q1

REPORT INFORMATION
  Report Type: 
  Country: None (occurrence: None)
  Receive Date: 20120309
  Receipt Date: 20111213
  Transmission Date: 20120608
  Serious: No
  Sender: FDA-Public Use
  Company Number: US-AMGEN-USASP2011066260

PATIENT
  Age: 77 Year
  Sex: Female

DRUGS (1)
  1. PROLIA [Suspect]
     Indication: OSTEOPOROSIS POSTMENOPAUSAL

REACTIONS (3)
  - HOT FLUSH [None]
  - HYPOAESTHESIA [None]
  - PRURITUS GENERALISED [None]
